FAERS Safety Report 14330110 (Version 3)
Quarter: 2018Q1

REPORT INFORMATION
  Report Type: Report from Study
  Country: US (occurrence: US)
  Receive Date: 20171227
  Receipt Date: 20180122
  Transmission Date: 20180509
  Serious: Yes (Hospitalization, Other)
  Sender: FDA-Public Use
  Company Number: US-GILEAD-2017-0312257

PATIENT
  Age: 84 Year
  Sex: Male
  Weight: 67.1 kg

DRUGS (8)
  1. IDELALISIB [Suspect]
     Active Substance: IDELALISIB
     Indication: CHRONIC LYMPHOCYTIC LEUKAEMIA
     Dosage: 100 MG, QD
     Route: 048
     Dates: start: 20170919, end: 20170929
  2. IDELALISIB [Suspect]
     Active Substance: IDELALISIB
     Dosage: 100 MG, QD
     Route: 048
     Dates: end: 20171212
  3. IDELALISIB [Suspect]
     Active Substance: IDELALISIB
     Dosage: 100 UNK, UNK
     Route: 048
     Dates: start: 2017, end: 20171119
  4. IDELALISIB [Suspect]
     Active Substance: IDELALISIB
     Dosage: 100 UNK, UNK
     Route: 048
     Dates: start: 2017, end: 201710
  5. IDELALISIB [Suspect]
     Active Substance: IDELALISIB
     Dosage: 100 UNK, UNK
     Route: 048
     Dates: start: 2017, end: 20171011
  6. COUMADIN [Suspect]
     Active Substance: WARFARIN SODIUM
     Indication: PRODUCT USED FOR UNKNOWN INDICATION
     Dosage: 1.5-3 MG PER DAY
     Route: 065
  7. IDELALISIB [Suspect]
     Active Substance: IDELALISIB
     Dosage: 100 MG, QD
     Route: 048
     Dates: start: 20171214
  8. RITUXAN [Concomitant]
     Active Substance: RITUXIMAB
     Dosage: UNK
     Dates: start: 20171109, end: 20171110

REACTIONS (9)
  - Renal tubular necrosis [Unknown]
  - Retroperitoneal haemorrhage [Unknown]
  - Haemophilus bacteraemia [Recovering/Resolving]
  - Haemolysis [Unknown]
  - Retroperitoneal haemorrhage [Recovered/Resolved]
  - Acute kidney injury [Recovered/Resolved]
  - Dental pulp disorder [Unknown]
  - Off label use [Not Recovered/Not Resolved]
  - Hypotension [Recovered/Resolved]

NARRATIVE: CASE EVENT DATE: 201708
